FAERS Safety Report 4638251-3 (Version None)
Quarter: 2005Q2

REPORT INFORMATION
  Report Type: 
  Country: None (occurrence: None)
  Receive Date: 20050418
  Receipt Date: 20050328
  Transmission Date: 20051028
  Serious: Yes (Death, Hospitalization, Other)
  Sender: FDA-Public Use
  Company Number: US_0503114647

PATIENT
  Age: 16 Year
  Sex: Male
  Weight: 114 kg

DRUGS (1)
  1. PROZAC [Suspect]
     Indication: DEPRESSION
     Dosage: 60 MG DAY
     Dates: start: 20040101

REACTIONS (7)
  - AGITATION [None]
  - COMPLETED SUICIDE [None]
  - CONDITION AGGRAVATED [None]
  - DEPRESSION [None]
  - EDUCATIONAL PROBLEM [None]
  - MURDER [None]
  - PHYSICAL ASSAULT [None]
